FAERS Safety Report 5282624-5 (Version None)
Quarter: 2007Q1

REPORT INFORMATION
  Report Type: 
  Country: None (occurrence: None)
  Receive Date: 20070331
  Receipt Date: 20070321
  Transmission Date: 20070707
  Serious: Yes (Life-Threatening)
  Sender: FDA-Public Use
  Company Number: PL-SHR-PL-2007-010486

PATIENT
  Age: 18 Year
  Sex: Male
  Weight: 58 kg

DRUGS (2)
  1. ULTRAVIST 300 [Suspect]
     Indication: COMPUTERISED TOMOGRAM HEAD
     Dosage: 50 ML, 1 DOSE
     Route: 042
     Dates: start: 20070320, end: 20070320
  2. VINPOCETINE [Concomitant]
     Indication: PREMEDICATION
     Dosage: 1 TAB(S), UNK
     Dates: start: 20070320, end: 20070320

REACTIONS (7)
  - EXTRASYSTOLES [None]
  - LOSS OF CONSCIOUSNESS [None]
  - PALLOR [None]
  - PERIPHERAL COLDNESS [None]
  - PRURITUS [None]
  - PULSE ABSENT [None]
  - SKIN BURNING SENSATION [None]
